FAERS Safety Report 24558321 (Version 5)
Quarter: 2025Q4

REPORT INFORMATION
  Report Type: Report from Study
  Country: CA (occurrence: CA)
  Receive Date: 20241029
  Receipt Date: 20251012
  Transmission Date: 20260118
  Serious: Yes (Hospitalization)
  Sender: JOHNSON AND JOHNSON
  Company Number: CA-JNJFOC-20241075079

PATIENT
  Age: 64 Year
  Sex: Female
  Weight: 73 kg

DRUGS (2)
  1. SIMPONI [Suspect]
     Active Substance: GOLIMUMAB
     Indication: Ankylosing spondylitis
     Dates: start: 20140708
  2. SIMPONI [Suspect]
     Active Substance: GOLIMUMAB
     Dates: start: 20140515

REACTIONS (2)
  - Anal infection [Recovering/Resolving]
  - Drug ineffective [Unknown]
